FAERS Safety Report 8775659 (Version 1)
Quarter: 2012Q4

REPORT INFORMATION
  Report Type: 
  Country: CN (occurrence: CN)
  Receive Date: 20120910
  Receipt Date: 20120910
  Transmission Date: 20130627
  Serious: Yes (Hospitalization)
  Sender: FDA-Public Use
  Company Number: CN-JNJFOC-20120900812

PATIENT
  Sex: Male

DRUGS (1)
  1. IMODIUM [Suspect]
     Indication: DIARRHOEA
     Route: 048
     Dates: start: 20120828, end: 20120828

REACTIONS (3)
  - Constipation [Recovering/Resolving]
  - Proctalgia [Recovering/Resolving]
  - Genital pain [Recovering/Resolving]
